FAERS Safety Report 7530405-1 (Version None)
Quarter: 2011Q2

REPORT INFORMATION
  Report Type: 
  Country: None (occurrence: None)
  Receive Date: 20110607
  Receipt Date: 20110525
  Transmission Date: 20111010
  Serious: Yes (Hospitalization, Other)
  Sender: FDA-Public Use
  Company Number: HU-ELI_LILLY_AND_COMPANY-HU201105007378

PATIENT
  Age: 41 Year
  Sex: Male

DRUGS (4)
  1. OLANZAPINE [Suspect]
     Dosage: 300 MG, MONTHLY (1/M)
     Route: 030
  2. OLANZAPINE [Suspect]
     Dosage: UNK, MONTHLY (1/M)
     Route: 030
  3. CLONAZEPAM [Concomitant]
     Dosage: UNK, QD
     Route: 065
  4. OLANZAPINE [Suspect]
     Indication: SCHIZOPHRENIA
     Dosage: 405 MG, MONTHLY (1/M)
     Route: 030
     Dates: start: 20101101

REACTIONS (6)
  - POLYURIA [None]
  - HICCUPS [None]
  - PSYCHOMOTOR SKILLS IMPAIRED [None]
  - HYPOAESTHESIA [None]
  - BLOOD SODIUM DECREASED [None]
  - BLOOD CREATINE PHOSPHOKINASE INCREASED [None]
